FAERS Safety Report 7542886-8 (Version None)
Quarter: 2011Q2

REPORT INFORMATION
  Report Type: 
  Country: None (occurrence: None)
  Receive Date: 20110613
  Receipt Date: 20110530
  Transmission Date: 20111010
  Serious: Yes (Other)
  Sender: FDA-Public Use
  Company Number: PHHY2011GR42513

PATIENT
  Age: 59 Year
  Sex: Female

DRUGS (3)
  1. DRUG THERAPY NOS [Concomitant]
     Indication: AUTOIMMUNE THYROIDITIS
  2. AMLODIPINE BESYLATE/VALSARTAN [Suspect]
     Indication: BLOOD PRESSURE INCREASED
     Dosage: 1 DF, BID
     Dates: start: 20110509
  3. ORAL BLOOD GLUCOSE LOWERING DRUGS [Concomitant]
     Indication: BLOOD GLUCOSE INCREASED

REACTIONS (12)
  - DYSPNOEA [None]
  - PRURITUS [None]
  - SKIN EXFOLIATION [None]
  - HYPERSOMNIA [None]
  - ERYTHEMA [None]
  - BLOOD PRESSURE INCREASED [None]
  - SWELLING FACE [None]
  - PHARYNGEAL OEDEMA [None]
  - OEDEMA PERIPHERAL [None]
  - BACK PAIN [None]
  - ANAPHYLACTIC REACTION [None]
  - DIZZINESS [None]
